FAERS Safety Report 10082511 (Version 2)
Quarter: 2014Q2

REPORT INFORMATION
  Report Type: Spontaneous
  Country: US (occurrence: US)
  Receive Date: 20140416
  Receipt Date: 20140429
  Transmission Date: 20141212
  Serious: Yes (Hospitalization)
  Sender: FDA-Public Use
  Company Number: US-BIOGENIDEC-2014BI034252

PATIENT
  Sex: Female

DRUGS (1)
  1. TECFIDERA [Suspect]
     Indication: MULTIPLE SCLEROSIS
     Route: 048
     Dates: start: 201403

REACTIONS (5)
  - Gastritis [Not Recovered/Not Resolved]
  - Renal failure acute [Not Recovered/Not Resolved]
  - Dehydration [Unknown]
  - Vomiting [Unknown]
  - Diarrhoea [Unknown]
